FAERS Safety Report 5500765-1 (Version None)
Quarter: 2007Q4

REPORT INFORMATION
  Report Type: 
  Country: None (occurrence: None)
  Receive Date: 20071029
  Receipt Date: 20071024
  Transmission Date: 20080405
  Serious: Yes (Hospitalization)
  Sender: FDA-Public Use
  Company Number: JP-BRISTOL-MYERS SQUIBB COMPANY-13908413

PATIENT
  Age: 72 Year
  Sex: Female
  Weight: 39 kg

DRUGS (12)
  1. BRIPLATIN [Suspect]
     Indication: PLEURAL MESOTHELIOMA MALIGNANT
     Route: 041
     Dates: start: 20070529, end: 20070703
  2. ALIMTA [Suspect]
     Indication: PLEURAL MESOTHELIOMA MALIGNANT
     Route: 041
     Dates: start: 20070529, end: 20070703
  3. RANDA [Suspect]
     Indication: PLEURAL MESOTHELIOMA MALIGNANT
     Route: 041
     Dates: start: 20070529, end: 20070703
  4. PANVITAN [Concomitant]
     Route: 048
     Dates: start: 20070518, end: 20070801
  5. METHYCOBAL [Concomitant]
     Route: 030
     Dates: start: 20070518, end: 20070720
  6. FERROMIA [Concomitant]
     Route: 048
     Dates: end: 20070801
  7. URSO 250 [Concomitant]
     Route: 048
     Dates: end: 20070801
  8. FLOPROPIONE [Concomitant]
     Route: 048
     Dates: end: 20070801
  9. TANNALBIN [Concomitant]
     Route: 048
     Dates: start: 20070603, end: 20070801
  10. ALFAROL [Concomitant]
     Route: 048
     Dates: end: 20070801
  11. DECADRON [Concomitant]
     Route: 041
     Dates: start: 20070529, end: 20070705
  12. KYTRIL [Concomitant]
     Route: 041
     Dates: start: 20070529, end: 20070704

REACTIONS (18)
  - AMYLOIDOSIS [None]
  - ANOREXIA [None]
  - ASPARTATE AMINOTRANSFERASE INCREASED [None]
  - BLOOD ALBUMIN DECREASED [None]
  - BLOOD ALKALINE PHOSPHATASE INCREASED [None]
  - BLOOD LACTATE DEHYDROGENASE INCREASED [None]
  - DIARRHOEA [None]
  - FEBRILE NEUTROPENIA [None]
  - GASTRIC ULCER [None]
  - HAEMATOCRIT DECREASED [None]
  - HAEMOGLOBIN DECREASED [None]
  - LYMPHOCYTE COUNT DECREASED [None]
  - OEDEMA [None]
  - PHARYNGITIS [None]
  - PLATELET COUNT DECREASED [None]
  - RED BLOOD CELL COUNT DECREASED [None]
  - RENAL FUNCTION TEST ABNORMAL [None]
  - WHITE BLOOD CELL COUNT DECREASED [None]
